FAERS Safety Report 14330862 (Version 2)
Quarter: 2017Q4

REPORT INFORMATION
  Report Type: Spontaneous
  Country: IN (occurrence: IN)
  Receive Date: 20171228
  Receipt Date: 20171230
  Transmission Date: 20180321
  Serious: Yes (Death, Hospitalization, Other)
  Sender: FDA-Public Use
  Company Number: IN-SUN PHARMACEUTICAL INDUSTRIES LTD-2017R1-157914

PATIENT
  Age: 5 Year
  Sex: Female

DRUGS (3)
  1. ETOPOSIDE. [Suspect]
     Active Substance: ETOPOSIDE
     Indication: RETINOBLASTOMA
     Dosage: 12 CYCLES OF CHEMOTHERAPY AT 4-WK INTERVAL
     Route: 042
  2. CARBOPLATIN. [Suspect]
     Active Substance: CARBOPLATIN
     Indication: RETINOBLASTOMA
     Dosage: 12 CYCLES OF CHEMOTHERAPY AT 4-WK INTERVAL
     Route: 042
  3. VINCRISTINE [Suspect]
     Active Substance: VINCRISTINE
     Indication: RETINOBLASTOMA
     Dosage: 12 CYCLES OF CHEMOTHERAPY AT 4-WK INTERVAL
     Route: 042

REACTIONS (2)
  - Acute myeloid leukaemia [Fatal]
  - Tumour lysis syndrome [Fatal]
